FAERS Safety Report 14509933 (Version 3)
Quarter: 2018Q1

REPORT INFORMATION
  Report Type: Spontaneous
  Country: FR (occurrence: FR)
  Receive Date: 20180209
  Receipt Date: 20180301
  Transmission Date: 20180509
  Serious: Yes (Congenital Anomaly, Other)
  Sender: FDA-Public Use
  Company Number: PHHY2017FR200651

PATIENT
  Sex: Female
  Weight: 2.2 kg

DRUGS (6)
  1. NEVIRAPINE. [Suspect]
     Active Substance: NEVIRAPINE
     Indication: PROPHYLAXIS
     Route: 065
  2. EPZICOM [Suspect]
     Active Substance: ABACAVIR SULFATE\LAMIVUDINE
     Indication: HIV INFECTION
     Route: 064
  3. NORVIR [Suspect]
     Active Substance: RITONAVIR
     Indication: HIV INFECTION
     Dosage: 1 DF, QD
     Route: 064
     Dates: start: 20160501, end: 20170129
  4. PREZISTA [Suspect]
     Active Substance: DARUNAVIR ETHANOLATE
     Indication: HIV INFECTION
     Route: 064
  5. KIVEXA [Suspect]
     Active Substance: ABACAVIR SULFATE\LAMIVUDINE
     Indication: HIV INFECTION
     Route: 064
  6. REYATAZ [Suspect]
     Active Substance: ATAZANAVIR SULFATE
     Indication: HIV INFECTION
     Route: 064

REACTIONS (10)
  - Congenital naevus [Unknown]
  - Acoustic stimulation tests abnormal [Unknown]
  - Supernumerary nipple [Unknown]
  - Breast disorder [Unknown]
  - Foetal exposure during pregnancy [Recovered/Resolved]
  - Dilatation ventricular [Unknown]
  - Eosinophilia [Unknown]
  - Dermatitis exfoliative generalised [Not Recovered/Not Resolved]
  - Foetal growth restriction [Recovering/Resolving]
  - Low set ears [Unknown]

NARRATIVE: CASE EVENT DATE: 20170129
